FAERS Safety Report 6741992-5 (Version None)
Quarter: 2010Q2

REPORT INFORMATION
  Report Type: 
  Country: None (occurrence: None)
  Receive Date: 20100526
  Receipt Date: 20100524
  Transmission Date: 20101027
  Serious: Yes (Death, Life-Threatening, Hospitalization, Other)
  Sender: FDA-Public Use
  Company Number: JP-SANOFI-AVENTIS-2010SA016506

PATIENT
  Age: 66 Year
  Sex: Male
  Weight: 60 kg

DRUGS (16)
  1. TAXOTERE [Suspect]
     Indication: PROSTATE CANCER
     Route: 042
     Dates: start: 20100115, end: 20100115
  2. TAXOTERE [Suspect]
     Route: 042
     Dates: start: 20100205, end: 20100205
  3. FLOMOX [Concomitant]
     Indication: SKIN ULCER
     Route: 048
     Dates: start: 20100129, end: 20100205
  4. MYSLEE [Concomitant]
     Route: 048
     Dates: start: 20100125
  5. LAC B [Concomitant]
     Route: 048
     Dates: start: 20100125
  6. DEXAMETHASONE SODIUM PHOSPHATE [Concomitant]
     Indication: PREMEDICATION
     Route: 042
     Dates: start: 20100205, end: 20100205
  7. RAMELTEON [Concomitant]
     Indication: PREMEDICATION
     Route: 042
     Dates: start: 20100205, end: 20100205
  8. LEUPLIN [Concomitant]
     Indication: PROSTATE CANCER
     Dosage: EVERY 12 WEEKS
     Route: 058
     Dates: start: 20070702
  9. URSO 250 [Concomitant]
     Indication: HEPATITIS C
     Route: 048
     Dates: start: 20070613
  10. ZYLORIC ^GLAXO WELLCOME^ [Concomitant]
     Indication: HYPERURICAEMIA
     Route: 048
     Dates: start: 20070710
  11. ALPHA-ADRENORECEPTOR ANTAGONISTS [Concomitant]
     Route: 048
     Dates: start: 20090422
  12. CELECOXIB [Concomitant]
     Indication: PAIN
     Route: 048
     Dates: start: 20090622
  13. SELBEX [Concomitant]
     Indication: GASTRITIS
     Route: 048
     Dates: start: 20090622
  14. DECADRON [Concomitant]
     Indication: PROSTATE CANCER
     Route: 048
     Dates: start: 20091104, end: 20100214
  15. OMEPRAL [Concomitant]
     Indication: GASTRITIS
     Route: 048
     Dates: start: 20091106
  16. LASIX [Concomitant]
     Route: 048
     Dates: start: 20100126

REACTIONS (3)
  - BURSITIS INFECTIVE [None]
  - FEBRILE NEUTROPENIA [None]
  - INTERSTITIAL LUNG DISEASE [None]
